FAERS Safety Report 14000024 (Version 1)
Quarter: 2017Q3

REPORT INFORMATION
  Report Type: Spontaneous
  Country: US (occurrence: None)
  Receive Date: 20170922
  Receipt Date: 20170922
  Transmission Date: 20171128
  Serious: No
  Sender: FDA-Public Use
  Company Number: None

PATIENT
  Age: 63 Year
  Sex: Female

DRUGS (1)
  1. IBRANCE [Suspect]
     Active Substance: PALBOCICLIB
     Indication: BREAST CANCER FEMALE
     Dosage: 75 MG DAILY X 21 DAY OFF 7 DAYS  PO??FROM 16JUN2016 TO HOLD
     Route: 048
     Dates: start: 20170616

REACTIONS (2)
  - Therapy cessation [None]
  - White blood cell count decreased [None]

NARRATIVE: CASE EVENT DATE: 20170911
